FAERS Safety Report 24264859 (Version 1)
Quarter: 2024Q3

REPORT INFORMATION
  Report Type: Spontaneous
  Country: US (occurrence: None)
  Receive Date: 20240828
  Receipt Date: 20240828
  Transmission Date: 20241016
  Serious: No
  Sender: Public
  Company Number: None

PATIENT
  Age: 65 Year
  Sex: Female
  Weight: 101.25 kg

DRUGS (20)
  1. TAMSULOSIN [Suspect]
     Active Substance: TAMSULOSIN
     Indication: Nephrolithiasis
     Dosage: OTHER QUANTITY : 14 CAPSULE(S);?FREQUENCY : DAILY;?
     Route: 048
     Dates: start: 20040812, end: 20040817
  2. ZYRTEC [Concomitant]
     Active Substance: CETIRIZINE HYDROCHLORIDE
  3. SINGULAIR [Concomitant]
  4. LEVOTHYROX [Concomitant]
  5. DEXEDRINE [Concomitant]
  6. Duloxetene [Concomitant]
  7. TOPIRAMATE [Concomitant]
     Active Substance: TOPIRAMATE
  8. GABAPENTIN [Concomitant]
  9. ADVAIR HFA [Concomitant]
     Active Substance: FLUTICASONE PROPIONATE\SALMETEROL XINAFOATE
  10. AZELAST [Concomitant]
  11. Albuterol inh [Concomitant]
  12. Fiorinal [Concomitant]
  13. Ocular [Concomitant]
  14. Hydrocoritsone [Concomitant]
  15. KRILL OIL [Concomitant]
  16. GLUCOSAMINE [Concomitant]
  17. VITAMIN D3 [Concomitant]
     Active Substance: CHOLECALCIFEROL
  18. Centrum wmn Eve primrose oil [Concomitant]
  19. VITAMIN E [Concomitant]
     Active Substance: .ALPHA.-TOCOPHEROL
  20. DICLOFENAC [Concomitant]

REACTIONS (4)
  - Somnolence [None]
  - Inappropriate schedule of product administration [None]
  - Memory impairment [None]
  - Therapy interrupted [None]

NARRATIVE: CASE EVENT DATE: 20240813
